FAERS Safety Report 11569218 (Version 1)
Quarter: 2015Q3

REPORT INFORMATION
  Report Type: Spontaneous
  Country: US (occurrence: US)
  Receive Date: 20150929
  Receipt Date: 20150929
  Transmission Date: 20151125
  Serious: No
  Sender: FDA-Public Use
  Company Number: US-JNJFOC-20150818311

PATIENT
  Age: 61 Year
  Sex: Male
  Weight: 95.26 kg

DRUGS (2)
  1. PEPCID AC MAXIMUM STRENGTH [Suspect]
     Active Substance: FAMOTIDINE
     Indication: DYSPEPSIA
     Dosage: 2 TABLETS EVERY OTHER DAY
     Route: 048
     Dates: end: 20150823
  2. PEPCID AC MAXIMUM STRENGTH [Suspect]
     Active Substance: FAMOTIDINE
     Indication: DYSPEPSIA
     Route: 048

REACTIONS (3)
  - Inappropriate schedule of drug administration [Unknown]
  - Physical product label issue [Unknown]
  - Drug ineffective [Unknown]
